FAERS Safety Report 17545229 (Version 1)
Quarter: 2020Q1

REPORT INFORMATION
  Report Type: Spontaneous
  Country: GB (occurrence: GB)
  Receive Date: 20200316
  Receipt Date: 20200316
  Transmission Date: 20200409
  Serious: Yes (Hospitalization)
  Sender: FDA-Public Use
  Company Number: GB-MYLANLABS-2020M1026426

PATIENT
  Age: 76 Year
  Sex: Male

DRUGS (3)
  1. VITAMIN B12 [Concomitant]
     Active Substance: CYANOCOBALAMIN
     Indication: VITAMIN SUPPLEMENTATION
     Dosage: UNK
     Route: 030
  2. DIHYDROCODEINE [Concomitant]
     Active Substance: DIHYDROCODEINE
     Indication: PRODUCT USED FOR UNKNOWN INDICATION
     Dosage: 240 MILLIGRAM, QD
  3. BACLOFEN. [Suspect]
     Active Substance: BACLOFEN
     Indication: ABDOMINAL PAIN
     Dosage: 80 MILLIGRAM, QD
     Route: 048

REACTIONS (11)
  - Visual impairment [Unknown]
  - Disease recurrence [Recovered/Resolved]
  - Dysstasia [Unknown]
  - Generalised tonic-clonic seizure [Recovered/Resolved]
  - Drop attacks [Unknown]
  - Muscle twitching [Unknown]
  - Myoclonus [Unknown]
  - Encephalopathy [Recovered/Resolved]
  - Confusional state [Unknown]
  - Somnolence [Unknown]
  - Product dispensing error [Unknown]
